FAERS Safety Report 11283543 (Version 1)
Quarter: 2015Q3

REPORT INFORMATION
  Report Type: Spontaneous
  Country: GB (occurrence: GB)
  Receive Date: 20150720
  Receipt Date: 20150720
  Transmission Date: 20151125
  Serious: Yes (Other)
  Sender: FDA-Public Use
  Company Number: GB-NOVOPROD-456005

PATIENT
  Age: 73 Year
  Sex: Male

DRUGS (2)
  1. ACTRAPID [Suspect]
     Active Substance: INSULIN HUMAN
     Indication: PRODUCT USED FOR UNKNOWN INDICATION
     Dosage: 10 UNITS ACTRAPID IN 50MLS 50% GLUCOSE
     Route: 065
     Dates: start: 20150520
  2. GLUCOSE [Suspect]
     Active Substance: DEXTROSE
     Indication: PRODUCT USED FOR UNKNOWN INDICATION
     Dosage: 50 ML, QD
     Route: 065
     Dates: start: 20150520

REACTIONS (3)
  - Sepsis [Unknown]
  - Hypoglycaemia [Unknown]
  - Acute kidney injury [Unknown]

NARRATIVE: CASE EVENT DATE: 20150520
